FAERS Safety Report 5152341-0 (Version None)
Quarter: 2006Q4

REPORT INFORMATION
  Report Type: 
  Country: None (occurrence: None)
  Receive Date: 20061116
  Receipt Date: 20061114
  Transmission Date: 20070319
  Serious: Yes (Life-Threatening, Hospitalization)
  Sender: FDA-Public Use
  Company Number: NL-SANOFI-SYNTHELABO-F01200602317

PATIENT
  Sex: Male

DRUGS (6)
  1. VITAMIN B6 [Concomitant]
     Dosage: UNK
  2. PANTOZOL [Concomitant]
     Dosage: UNK
  3. CETUXIMAB [Suspect]
     Dosage: 400 MG/M2 DAY 1 OF CYCLE 1, THEREAFTER 250 MG/M2 WEEKLY
     Route: 041
     Dates: start: 20061101, end: 20061101
  4. BEVACIZUMAB [Suspect]
     Route: 041
     Dates: start: 20061108, end: 20061108
  5. CAPECITABINE [Suspect]
     Dosage: DAYS 1-14 (1250 MG/M2 AFTER CYCLE 6) 4000 MG
     Route: 048
     Dates: start: 20061108
  6. OXALIPLATIN [Suspect]
     Indication: COLORECTAL CANCER
     Route: 041
     Dates: start: 20061108, end: 20061108

REACTIONS (6)
  - DIARRHOEA [None]
  - HICCUPS [None]
  - METABOLIC ACIDOSIS [None]
  - ORAL CANDIDIASIS [None]
  - RASH [None]
  - SYNCOPE VASOVAGAL [None]
